FAERS Safety Report 4347025-2 (Version None)
Quarter: 2004Q1

REPORT INFORMATION
  Report Type: 
  Country: None (occurrence: None)
  Receive Date: 20040325
  Receipt Date: 20040204
  Transmission Date: 20041129
  Serious: No
  Sender: FDA-Public Use
  Company Number: USA040258412

PATIENT
  Age: 71 Year
  Sex: Female
  Weight: 64 kg

DRUGS (4)
  1. FORTEO [Suspect]
     Indication: BONE DISORDER
     Dosage: 20 UG/DAY
     Dates: start: 20040109
  2. VERAPAMIL [Concomitant]
  3. SYNTHROID [Concomitant]
  4. OGEN [Concomitant]

REACTIONS (1)
  - ALOPECIA [None]
